FAERS Safety Report 9180849 (Version 2)
Quarter: 2013Q2

REPORT INFORMATION
  Report Type: Spontaneous
  Country: US (occurrence: US)
  Receive Date: 20130322
  Receipt Date: 20130517
  Transmission Date: 20140414
  Serious: No
  Sender: FDA-Public Use
  Company Number: US-VERTEX PHARMACEUTICALS INC.-2013-003762

PATIENT
  Age: 44 Year
  Sex: Female
  Weight: 68 kg

DRUGS (4)
  1. INCIVEK [Suspect]
     Indication: HEPATITIS C
     Dosage: 750 MG, TID
     Route: 048
     Dates: start: 20130301
  2. RIBAVIRIN [Suspect]
     Indication: HEPATITIS C
     Dosage: 600MG AM, 400MG PM
     Route: 048
     Dates: start: 20130301
  3. PEGASYS [Suspect]
     Indication: HEPATITIS C
     Dosage: 180 ?G, QW
     Route: 058
     Dates: start: 20130301
  4. BASIX [Concomitant]
     Dosage: 20 MG, UNK

REACTIONS (13)
  - Depression [Not Recovered/Not Resolved]
  - Anxiety [Not Recovered/Not Resolved]
  - Tooth fracture [Not Recovered/Not Resolved]
  - Alopecia [Unknown]
  - Fluid retention [Unknown]
  - Oral mucosal blistering [Unknown]
  - Joint swelling [Unknown]
  - Contusion [Unknown]
  - Tongue dry [Unknown]
  - Glossodynia [Unknown]
  - Diet noncompliance [Unknown]
  - Fatigue [Unknown]
  - Rash macular [Recovered/Resolved]
